FAERS Safety Report 4909860-9 (Version None)
Quarter: 2006Q1

REPORT INFORMATION
  Report Type: 
  Country: None (occurrence: None)
  Receive Date: 20060208
  Receipt Date: 20060130
  Transmission Date: 20060701
  Serious: Yes (Hospitalization, Other)
  Sender: FDA-Public Use
  Company Number: 2005156540

PATIENT
  Age: 58 Year
  Sex: Female

DRUGS (27)
  1. NEURONTIN [Suspect]
     Indication: NEUROPATHY PERIPHERAL
     Dosage: 2400 MG (600 MG, 4 IN 1 D),
     Dates: start: 20040804
  2. LYRICA [Suspect]
     Indication: NEUROPATHY PERIPHERAL
     Dosage: 300 MG (100 MG, 3 I 1 D),
     Dates: start: 20051010, end: 20051026
  3. MOBIC [Concomitant]
  4. CREON [Concomitant]
  5. PERCOCET (OXYCODONE HYROCHLORIDE, PARACETAMOL) [Concomitant]
  6. QVAR (BECLOMETASONE DIPROPIONATE) [Concomitant]
  7. XOPENEX [Concomitant]
  8. ESTROGENS (ESTROGENS) [Concomitant]
  9. ALL OTHER THERAPEUTIC PRODUCTS (ALL OTHER THERAPEUTIC PRODUCTS) [Concomitant]
  10. TESTOSTERONE [Concomitant]
  11. LEVAQUIN [Concomitant]
  12. PREDNISONE [Concomitant]
  13. AVANDAMET (METFORMIN HYDROCHLORIDE, ROSIGLITAZONE) [Concomitant]
  14. FLEXERIL [Concomitant]
  15. PHENERGAN ^AVENTIS PHARMA^ (PROMETAZINE HYDROCHLORIDE) [Concomitant]
  16. PLAVIX [Concomitant]
  17. ULTRAM [Concomitant]
  18. NEXIUM [Concomitant]
  19. TIAZAC [Concomitant]
  20. ACCOLATE [Concomitant]
  21. FLONASE [Concomitant]
  22. GUAIFENEX DM (DEXTROMETHORPHAN HYDROBROMIDE, GUAIFENEX) [Concomitant]
  23. DITROPAN XL [Concomitant]
  24. FLUOXETINE [Concomitant]
  25. METOCLOPRAMIDE [Concomitant]
  26. SPIRONOLACTONE [Concomitant]
  27. IMDUR [Concomitant]

REACTIONS (20)
  - ASTHENIA [None]
  - CELLULITIS [None]
  - CONDITION AGGRAVATED [None]
  - COR PULMONALE [None]
  - DRUG INEFFECTIVE [None]
  - DYSARTHRIA [None]
  - GRIP STRENGTH DECREASED [None]
  - HEADACHE [None]
  - HYPOREFLEXIA [None]
  - LACUNAR INFARCTION [None]
  - LYMPHOEDEMA [None]
  - MUSCULOSKELETAL DISORDER [None]
  - OEDEMA PERIPHERAL [None]
  - OXYGEN SATURATION DECREASED [None]
  - PARAESTHESIA [None]
  - PULMONARY HYPERTENSION [None]
  - RESPIRATORY RATE INCREASED [None]
  - SCINTILLATING SCOTOMA [None]
  - SENSORY LOSS [None]
  - VISION BLURRED [None]
